FAERS Safety Report 4908854-7 (Version None)
Quarter: 2006Q1

REPORT INFORMATION
  Report Type: 
  Country: None (occurrence: None)
  Receive Date: 20060210
  Receipt Date: 20051207
  Transmission Date: 20060701
  Serious: No
  Sender: FDA-Public Use
  Company Number: US-GLAXOSMITHKLINE-A0584969A

PATIENT
  Age: 85 Year
  Sex: Female

DRUGS (9)
  1. PAXIL CR [Suspect]
     Indication: DEPRESSION
     Dosage: 12.5MG PER DAY
     Route: 048
     Dates: start: 20051101
  2. NORVASC [Concomitant]
     Indication: HYPERTENSION
     Dosage: 5MG PER DAY
     Route: 048
  3. COUMADIN [Concomitant]
     Dosage: 2.5MG PER DAY
     Route: 048
     Dates: start: 20050601
  4. PROTONIX [Concomitant]
     Dosage: 50MG PER DAY
     Route: 048
     Dates: start: 20030601
  5. LIPITOR [Concomitant]
     Dosage: 10MG PER DAY
     Route: 048
     Dates: start: 20010801
  6. BUSPAR [Concomitant]
     Indication: ANXIETY
     Route: 048
     Dates: start: 20050401
  7. PRINIVIL [Concomitant]
     Indication: HYPERTENSION
     Dosage: 40MG PER DAY
     Route: 048
     Dates: start: 19991201
  8. HYDROCHLOROTHIAZIDE [Concomitant]
     Indication: HYPERTENSION
     Dosage: 50MG TWICE PER DAY
     Route: 048
     Dates: start: 20040401
  9. MICRO-K [Concomitant]
     Dosage: 10MEQ TWICE PER DAY
     Route: 048
     Dates: start: 19950201

REACTIONS (2)
  - RASH [None]
  - SWELLING FACE [None]
